FAERS Safety Report 9686636 (Version 1)
Quarter: 2013Q4

REPORT INFORMATION
  Report Type: Spontaneous
  Country: US (occurrence: US)
  Receive Date: 20131113
  Receipt Date: 20131113
  Transmission Date: 20140711
  Serious: No
  Sender: FDA-Public Use
  Company Number: US-ENDO PHARMACEUTICALS INC.-TRAZ20110006

PATIENT
  Age: 66 Year
  Sex: Female

DRUGS (1)
  1. TRAZODONE HYDROCHLORIDE TABLETS 50MG [Suspect]
     Indication: INSOMNIA
     Dosage: UNKNOWN
     Route: 048

REACTIONS (5)
  - Oropharyngeal pain [Not Recovered/Not Resolved]
  - Abdominal pain upper [Not Recovered/Not Resolved]
  - Gastritis [Not Recovered/Not Resolved]
  - Gastrooesophageal reflux disease [Not Recovered/Not Resolved]
  - Weight decreased [Unknown]
